FAERS Safety Report 6964047-3 (Version None)
Quarter: 2010Q3

REPORT INFORMATION
  Report Type: 
  Country: None (occurrence: None)
  Receive Date: 20100902
  Receipt Date: 20100902
  Transmission Date: 20110219
  Serious: No
  Sender: FDA-Public Use
  Company Number: None

PATIENT
  Sex: Male
  Weight: 68.4 kg

DRUGS (6)
  1. DAUNORUBICIN HCL [Suspect]
     Dosage: 178 MG
     Dates: end: 20100730
  2. METHOTREXATE [Suspect]
     Dosage: 30 MG
     Dates: end: 20100806
  3. PEG-L-ASPARAGINASE (PEGASPARGASE, ONCOSPAR) [Suspect]
     Dosage: 4425 IU
     Dates: end: 20100711
  4. PREDNISONE [Suspect]
     Dosage: 2940 MG
     Dates: end: 20100806
  5. VINCRISTINE SULFATE [Suspect]
     Dosage: 8 MG
     Dates: end: 20100730
  6. CYTARABINE [Suspect]
     Dosage: 70 MG
     Dates: end: 20100708

REACTIONS (1)
  - BLOOD BILIRUBIN INCREASED [None]
